FAERS Safety Report 19886893 (Version 1)
Quarter: 2021Q3

REPORT INFORMATION
  Report Type: Spontaneous
  Country: CN (occurrence: CN)
  Receive Date: 20210927
  Receipt Date: 20210927
  Transmission Date: 20211014
  Serious: Yes (Other)
  Sender: FDA-Public Use
  Company Number: CN-009507513-2109CHN005534

PATIENT
  Age: 69 Year
  Sex: Male
  Weight: 49 kg

DRUGS (3)
  1. PITAVASTATIN CALCIUM [Suspect]
     Active Substance: PITAVASTATIN CALCIUM
     Indication: SYMPTOMATIC TREATMENT
     Dosage: 1 MG, ONCE DAILY
     Route: 048
     Dates: start: 20210902, end: 20210912
  2. AVELOX [Suspect]
     Active Substance: MOXIFLOXACIN HYDROCHLORIDE
     Indication: ILL-DEFINED DISORDER
     Dosage: 0.4 G, ONCE DAILY
     Route: 048
     Dates: start: 20210828, end: 20210912
  3. INVANZ [Suspect]
     Active Substance: ERTAPENEM SODIUM
     Indication: ILL-DEFINED DISORDER
     Dosage: 1 G, ONCE DAILY
     Route: 041
     Dates: start: 20210828, end: 20210912

REACTIONS (1)
  - Liver function test increased [Recovering/Resolving]

NARRATIVE: CASE EVENT DATE: 20210909
